FAERS Safety Report 15536689 (Version 1)
Quarter: 2018Q4

REPORT INFORMATION
  Report Type: Spontaneous
  Country: US (occurrence: US)
  Receive Date: 20181022
  Receipt Date: 20181022
  Transmission Date: 20190205
  Serious: Yes (Other)
  Sender: FDA-Public Use
  Company Number: None

PATIENT
  Age: 80 Year
  Sex: Female
  Weight: 74.25 kg

DRUGS (4)
  1. LOPRESSER [Concomitant]
  2. SYNTHROID [Concomitant]
     Active Substance: LEVOTHYROXINE SODIUM
  3. MONTELEUKAST [Concomitant]
     Active Substance: MONTELUKAST SODIUM
  4. VALSARTAN. [Suspect]
     Active Substance: VALSARTAN
     Indication: BLOOD PRESSURE INADEQUATELY CONTROLLED
     Route: 048
     Dates: end: 20180801

REACTIONS (2)
  - Product substitution issue [None]
  - Squamous cell carcinoma [None]

NARRATIVE: CASE EVENT DATE: 20180208
